FAERS Safety Report 19267193 (Version 2)
Quarter: 2023Q1

REPORT INFORMATION
  Report Type: Spontaneous
  Country: CA (occurrence: None)
  Receive Date: 20210517
  Receipt Date: 20230210
  Transmission Date: 20230417
  Serious: Yes (Other)
  Sender: FDA-Public Use
  Company Number: 2021A422259

PATIENT
  Age: 51 Year
  Sex: Male

DRUGS (12)
  1. DAPAGLIFLOZIN [Suspect]
     Active Substance: DAPAGLIFLOZIN
     Indication: Diabetes mellitus
     Dosage: SWALLOW
     Route: 048
  2. ESOMEPRAZOLE [Concomitant]
     Active Substance: ESOMEPRAZOLE
  3. EZETIMIBE [Concomitant]
     Active Substance: EZETIMIBE
  4. HUMALOG [Concomitant]
     Active Substance: INSULIN LISPRO
     Dosage: VIA INSULIN PUMP
     Route: 058
  5. LORAZEPAM [Concomitant]
     Active Substance: LORAZEPAM
     Dosage: 1.0MG AS REQUIRED
  6. METOPROLOL [Concomitant]
     Active Substance: METOPROLOL
  7. OMNARIS [Concomitant]
     Active Substance: CICLESONIDE
     Dosage: INTRANASALLY
  8. PREGABALIN [Concomitant]
     Active Substance: PREGABALIN
  9. RAMIPRIL [Concomitant]
     Active Substance: RAMIPRIL
  10. ROSUVASTATIN [Concomitant]
     Active Substance: ROSUVASTATIN
  11. SERTRALINE [Concomitant]
     Active Substance: SERTRALINE HYDROCHLORIDE
  12. LATANOPROST [Concomitant]
     Active Substance: LATANOPROST
     Dosage: EYEDROPS AT BEDTIME

REACTIONS (7)
  - Blood ketone body present [Recovered/Resolved]
  - Abdominal pain [Recovered/Resolved]
  - Blood glucose increased [Recovered/Resolved]
  - Nausea [Recovered/Resolved]
  - Stress [Recovered/Resolved]
  - Vomiting [Recovered/Resolved]
  - Diabetic ketoacidosis [Recovered/Resolved]

NARRATIVE: CASE EVENT DATE: 20201202
